FAERS Safety Report 9726390 (Version 2)
Quarter: 2013Q4

REPORT INFORMATION
  Report Type: Spontaneous
  Country: US (occurrence: US)
  Receive Date: 20131203
  Receipt Date: 20131203
  Transmission Date: 20140711
  Serious: Yes (Other)
  Sender: FDA-Public Use
  Company Number: US-ASTRAZENECA-2012SE14589

PATIENT
  Age: 65 Year
  Sex: Female
  Weight: 91.6 kg

DRUGS (33)
  1. ZESTRIL [Suspect]
     Dosage: GENERIC
     Route: 048
  2. NEXIUM [Suspect]
     Indication: GASTROOESOPHAGEAL REFLUX DISEASE
     Route: 048
     Dates: start: 2009
  3. NEXIUM [Suspect]
     Indication: GASTROOESOPHAGEAL REFLUX DISEASE
     Route: 048
     Dates: start: 2009
  4. PRILOSEC [Suspect]
     Indication: GASTROOESOPHAGEAL REFLUX DISEASE
     Route: 048
  5. PREVACID [Concomitant]
     Route: 048
  6. FLOVENT [Concomitant]
     Route: 055
  7. FLONAISE [Concomitant]
     Indication: MULTIPLE ALLERGIES
     Route: 055
  8. PROAIR [Concomitant]
     Route: 055
  9. TYLENOL XTRA [Concomitant]
     Route: 048
  10. TUMS [Concomitant]
     Route: 048
  11. MULTIVITAMIN [Concomitant]
     Route: 048
  12. VITAMIN D3 [Concomitant]
     Route: 048
  13. MIRALAX [Concomitant]
     Indication: FUNCTIONAL GASTROINTESTINAL DISORDER
     Dosage: 17 GM IN BEVERAGE BID 8.5 DAILY
     Route: 048
  14. SINGULAIR [Concomitant]
     Indication: ASTHMA
     Route: 048
  15. SINGULAIR [Concomitant]
     Indication: MULTIPLE ALLERGIES
     Route: 048
  16. REFRESH OPHTH SOL [Concomitant]
     Route: 047
  17. ZATADOR OPHTH SOL [Concomitant]
     Indication: MULTIPLE ALLERGIES
     Route: 047
  18. GENTEAL OPHTH OINT [Concomitant]
     Indication: DRY EYE
     Dosage: 1/4 RIGHT EYE 5 H
     Route: 061
  19. GENTEAL OPHTH OINT [Concomitant]
     Indication: MULTIPLE ALLERGIES
     Dosage: 1/4 RIGHT EYE 5 H
     Route: 061
  20. ACC DOPHYLLAS [Concomitant]
     Route: 048
  21. AVAPRO [Concomitant]
     Indication: BLOOD PRESSURE ABNORMAL
     Route: 048
  22. HCTZ [Concomitant]
     Indication: BLOOD PRESSURE ABNORMAL
     Route: 048
  23. ALLEGRA [Concomitant]
     Indication: MULTIPLE ALLERGIES
     Route: 048
  24. ZYMAR [Concomitant]
     Route: 047
  25. GAVISCON [Concomitant]
     Indication: FUNCTIONAL GASTROINTESTINAL DISORDER
     Dosage: DAILY
     Route: 048
  26. DAIRING RELIEF [Concomitant]
     Dosage: PRN
  27. ZANTAC [Concomitant]
  28. ZIGERID [Concomitant]
  29. ASMANEX [Concomitant]
     Indication: ASTHMA
     Dosage: 220 MCTG BID
     Route: 055
  30. PROAIR HFA [Concomitant]
     Indication: ASTHMA
     Dosage: 2 SPRAYS Q4H
     Route: 055
  31. REFRESH EYE DROPS [Concomitant]
     Indication: DRY EYE
     Dosage: ONE DROP IN EACH EYE DAILY
     Route: 050
  32. REFRESH EYE DROPS [Concomitant]
     Indication: MULTIPLE ALLERGIES
     Dosage: ONE DROP IN EACH EYE DAILY
     Route: 050
  33. ACIDOPHILUS [Concomitant]
     Indication: FUNCTIONAL GASTROINTESTINAL DISORDER
     Dosage: DAILY
     Route: 048

REACTIONS (12)
  - Uterine cancer [Unknown]
  - Glaucoma [Unknown]
  - Coeliac disease [Unknown]
  - Constipation [Unknown]
  - Drug hypersensitivity [Unknown]
  - Body height decreased [Unknown]
  - Dacryostenosis acquired [Unknown]
  - Asthma [Unknown]
  - Nasopharyngitis [Unknown]
  - Gastrooesophageal reflux disease [Unknown]
  - Cough [Unknown]
  - Drug ineffective [Unknown]
